FAERS Safety Report 9192179 (Version 1)
Quarter: 2013Q1

REPORT INFORMATION
  Report Type: Spontaneous
  Country: IN (occurrence: None)
  Receive Date: 20130325
  Receipt Date: 20130325
  Transmission Date: 20140127
  Serious: Yes (Hospitalization)
  Sender: FDA-Public Use
  Company Number: FK201300893

PATIENT
  Age: 14 Year
  Sex: Female

DRUGS (4)
  1. CYTARABINE (CYTARABINE) [Suspect]
     Dosage: 100 MG/M2, INTRAVENOUS (NOT OTHERWISE SPECIFIED)
     Route: 042
  2. IDARUBICIN (IDARUBICIN) [Concomitant]
  3. ETOPOSIDE (ETOPOSIDE) [Concomitant]
  4. MITOXANTRONE (MITOXANTRONE) [Concomitant]

REACTIONS (1)
  - Palmar-plantar erythrodysaesthesia syndrome [None]
